FAERS Safety Report 15753036 (Version 1)
Quarter: 2018Q4

REPORT INFORMATION
  Report Type: Spontaneous
  Country: US (occurrence: US)
  Receive Date: 20181221
  Receipt Date: 20181221
  Transmission Date: 20190205
  Serious: Yes (Hospitalization)
  Sender: FDA-Public Use
  Company Number: US-ZYDUS-031747

PATIENT
  Age: 7 Year
  Sex: Male

DRUGS (1)
  1. DEXTROAMPHETAMINE/AMPHETAMINE [Suspect]
     Active Substance: AMPHETAMINE\DEXTROAMPHETAMINE
     Indication: PRODUCT USED FOR UNKNOWN INDICATION
     Dosage: ESTIMATED INGESTION OF AT LEAST 30 MG
     Route: 048

REACTIONS (3)
  - Hallucination, visual [Unknown]
  - Confusional state [Unknown]
  - Accidental exposure to product [Unknown]
